FAERS Safety Report 17791945 (Version 1)
Quarter: 2020Q2

REPORT INFORMATION
  Report Type: Spontaneous
  Country: US (occurrence: US)
  Receive Date: 20200515
  Receipt Date: 20200515
  Transmission Date: 20200714
  Serious: No
  Sender: FDA-Public Use
  Company Number: US-PFIZER INC-2020193779

PATIENT
  Sex: Male
  Weight: 92.53 kg

DRUGS (4)
  1. NOVOLOG [Concomitant]
     Active Substance: INSULIN ASPART
     Dosage: UNK (70/30)
  2. GABAPENTIN. [Concomitant]
     Active Substance: GABAPENTIN
     Dosage: UNK
  3. BABY ASPIRIN [Concomitant]
     Active Substance: ASPIRIN
     Dosage: UNK
  4. SILDENAFIL CITRATE. [Suspect]
     Active Substance: SILDENAFIL CITRATE
     Dosage: 100 MG

REACTIONS (3)
  - Body height decreased [Unknown]
  - Drug ineffective [Unknown]
  - Prescription drug used without a prescription [Unknown]
